FAERS Safety Report 10025004 (Version 2)
Quarter: 2014Q2

REPORT INFORMATION
  Report Type: Spontaneous
  Country: US (occurrence: US)
  Receive Date: 20140320
  Receipt Date: 20140416
  Transmission Date: 20141212
  Serious: Yes (Other)
  Sender: FDA-Public Use
  Company Number: US-GLAXOSMITHKLINE-A1064708A

PATIENT
  Age: 59 Year
  Sex: Male
  Weight: 87.3 kg

DRUGS (3)
  1. BENLYSTA [Suspect]
     Indication: PRODUCT USED FOR UNKNOWN INDICATION
     Dosage: 880MG UNKNOWN
     Route: 042
     Dates: start: 20140217
  2. UNKNOWN [Concomitant]
  3. RITUXAN [Concomitant]

REACTIONS (5)
  - Stent placement [Recovered/Resolved]
  - Pain in jaw [Recovered/Resolved]
  - Nausea [Recovered/Resolved]
  - Chest pain [Recovered/Resolved]
  - Hyperhidrosis [Recovered/Resolved]
